FAERS Safety Report 18582065 (Version 2)
Quarter: 2020Q4

REPORT INFORMATION
  Report Type: Report from Study
  Country: DE (occurrence: DE)
  Receive Date: 20201204
  Receipt Date: 20201230
  Transmission Date: 20210114
  Serious: Yes (Hospitalization, Other)
  Sender: FDA-Public Use
  Company Number: DE-TAKEDA-DE202028404

PATIENT
  Age: 50 Year
  Sex: Male

DRUGS (50)
  1. TEDUGLUTIDE [Suspect]
     Active Substance: TEDUGLUTIDE
     Indication: SHORT-BOWEL SYNDROME
     Dosage: 4.25 MILLIGRAM, OTHER (7 DOSES PER WEEK)
     Route: 065
     Dates: start: 20190111, end: 20190310
  2. TEDUGLUTIDE [Suspect]
     Active Substance: TEDUGLUTIDE
     Dosage: 2 MILLIGRAM, OTHER (7 DOSES PER WEEK)
     Route: 065
     Dates: start: 20190830, end: 20191014
  3. TEDUGLUTIDE [Suspect]
     Active Substance: TEDUGLUTIDE
     Dosage: 2.5 MILLIGRAM, OTHER (7 DOSES PER WEEK)
     Route: 065
     Dates: start: 20191015, end: 20191027
  4. TEDUGLUTIDE [Suspect]
     Active Substance: TEDUGLUTIDE
     Dosage: 3.5 MILLIGRAM, OTHER (7 DOSES PER WEEK)
     Route: 065
     Dates: start: 20191028, end: 20200214
  5. TEDUGLUTIDE [Suspect]
     Active Substance: TEDUGLUTIDE
     Dosage: 3.2 MILLIGRAM, OTHER (7 DOSES PER WEEK)
     Route: 065
     Dates: start: 20200218
  6. TEDUGLUTIDE [Suspect]
     Active Substance: TEDUGLUTIDE
     Dosage: 3.2 MILLIGRAM, OTHER (4 DOSES PER WEEK)
     Route: 065
     Dates: start: 20200810, end: 20200819
  7. TEDUGLUTIDE [Suspect]
     Active Substance: TEDUGLUTIDE
     Dosage: 3.2 MILLIGRAM, OTHER (7 DOSES PER WEEK)
     Route: 065
     Dates: start: 20200820
  8. TEDUGLUTIDE [Suspect]
     Active Substance: TEDUGLUTIDE
     Dosage: 3.8 MILLIGRAM, OTHER (7 DOSES PER WEEK)
     Route: 065
     Dates: start: 201904, end: 20190822
  9. TEDUGLUTIDE [Suspect]
     Active Substance: TEDUGLUTIDE
     Dosage: 3.5 MILLIGRAM, OTHER (7 DOSES PER WEEK)
     Route: 065
     Dates: start: 20191028, end: 20200214
  10. TEDUGLUTIDE [Suspect]
     Active Substance: TEDUGLUTIDE
     Dosage: 3.2 MILLIGRAM, OTHER (7 DOSES PER WEEK)
     Route: 065
     Dates: start: 20200218
  11. TEDUGLUTIDE [Suspect]
     Active Substance: TEDUGLUTIDE
     Dosage: 3.2 MILLIGRAM, OTHER (7 DOSES PER WEEK)
     Route: 065
     Dates: start: 20200820
  12. KALINOR RETARD P [Concomitant]
     Active Substance: POTASSIUM CHLORIDE
     Indication: PRODUCT USED FOR UNKNOWN INDICATION
  13. TEDUGLUTIDE [Suspect]
     Active Substance: TEDUGLUTIDE
     Dosage: 3.8 MILLIGRAM, OTHER (7 DOSES PER WEEK)
     Route: 065
     Dates: start: 201904, end: 20190822
  14. TEDUGLUTIDE [Suspect]
     Active Substance: TEDUGLUTIDE
     Dosage: 3.8 MILLIGRAM, OTHER (4 DOSES PER WEEK)
     Route: 065
     Dates: start: 20190823, end: 20190829
  15. TEDUGLUTIDE [Suspect]
     Active Substance: TEDUGLUTIDE
     Dosage: 2 MILLIGRAM, OTHER (7 DOSES PER WEEK)
     Route: 065
     Dates: start: 20190830, end: 20191014
  16. TEDUGLUTIDE [Suspect]
     Active Substance: TEDUGLUTIDE
     Dosage: 2 MILLIGRAM, OTHER (7 DOSES PER WEEK)
     Route: 065
     Dates: start: 20190830, end: 20191014
  17. TEDUGLUTIDE [Suspect]
     Active Substance: TEDUGLUTIDE
     Dosage: 2.5 MILLIGRAM, OTHER (7 DOSES PER WEEK)
     Route: 065
     Dates: start: 20191015, end: 20191027
  18. TEDUGLUTIDE [Suspect]
     Active Substance: TEDUGLUTIDE
     Dosage: 4 MILLIGRAM, OTHER (7 DOSES PER WEEK)
     Route: 065
     Dates: start: 20190311
  19. TEDUGLUTIDE [Suspect]
     Active Substance: TEDUGLUTIDE
     Dosage: 2 MILLIGRAM, OTHER (7 DOSES PER WEEK)
     Route: 065
     Dates: start: 20190830, end: 20191014
  20. TEDUGLUTIDE [Suspect]
     Active Substance: TEDUGLUTIDE
     Dosage: 3.2 MILLIGRAM, OTHER (4 DOSES PER WEEK)
     Route: 065
     Dates: start: 20200810, end: 20200819
  21. TEDUGLUTIDE [Suspect]
     Active Substance: TEDUGLUTIDE
     Dosage: 3.2 MILLIGRAM, QD
     Route: 065
     Dates: start: 202010
  22. IBUPROFEN. [Concomitant]
     Active Substance: IBUPROFEN
     Indication: ARTHRALGIA
  23. TRAMAL [Concomitant]
     Active Substance: TRAMADOL
     Indication: FLANK PAIN
  24. SELENASE T [Concomitant]
     Indication: SELENIUM DEFICIENCY
  25. TEDUGLUTIDE [Suspect]
     Active Substance: TEDUGLUTIDE
     Dosage: 3.8 MILLIGRAM, OTHER (7 DOSES PER WEEK)
     Route: 065
     Dates: start: 201904, end: 20190822
  26. TEDUGLUTIDE [Suspect]
     Active Substance: TEDUGLUTIDE
     Dosage: 3.8 MILLIGRAM, OTHER (4 DOSES PER WEEK)
     Route: 065
     Dates: start: 20190823, end: 20190829
  27. TEDUGLUTIDE [Suspect]
     Active Substance: TEDUGLUTIDE
     Dosage: 3.5 MILLIGRAM, OTHER (7 DOSES PER WEEK)
     Route: 065
     Dates: start: 20191028, end: 20200214
  28. TEDUGLUTIDE [Suspect]
     Active Substance: TEDUGLUTIDE
     Dosage: 3.2 MILLIGRAM, OTHER (7 DOSES PER WEEK)
     Route: 065
     Dates: start: 20200820
  29. TEDUGLUTIDE [Suspect]
     Active Substance: TEDUGLUTIDE
     Dosage: 3.2 MILLIGRAM, QD
     Route: 065
     Dates: start: 202010
  30. TEDUGLUTIDE [Suspect]
     Active Substance: TEDUGLUTIDE
     Dosage: 3.2 MILLIGRAM, QD
     Route: 065
     Dates: start: 202010
  31. TEDUGLUTIDE [Suspect]
     Active Substance: TEDUGLUTIDE
     Indication: SHORT-BOWEL SYNDROME
     Dosage: 4.25 MILLIGRAM, OTHER (7 DOSES PER WEEK)
     Route: 065
     Dates: start: 20190111, end: 20190310
  32. TEDUGLUTIDE [Suspect]
     Active Substance: TEDUGLUTIDE
     Indication: SHORT-BOWEL SYNDROME
     Dosage: 4.25 MILLIGRAM, OTHER (7 DOSES PER WEEK)
     Route: 065
     Dates: start: 20190111, end: 20190310
  33. TEDUGLUTIDE [Suspect]
     Active Substance: TEDUGLUTIDE
     Dosage: 4 MILLIGRAM, OTHER (7 DOSES PER WEEK)
     Route: 065
     Dates: start: 20190311
  34. TEDUGLUTIDE [Suspect]
     Active Substance: TEDUGLUTIDE
     Dosage: 2.5 MILLIGRAM, OTHER (7 DOSES PER WEEK)
     Route: 065
     Dates: start: 20191015, end: 20191027
  35. TEDUGLUTIDE [Suspect]
     Active Substance: TEDUGLUTIDE
     Dosage: 2.5 MILLIGRAM, OTHER (7 DOSES PER WEEK)
     Route: 065
     Dates: start: 20191015, end: 20191027
  36. TEDUGLUTIDE [Suspect]
     Active Substance: TEDUGLUTIDE
     Dosage: 3.2 MILLIGRAM, OTHER (7 DOSES PER WEEK)
     Route: 065
     Dates: start: 20200218
  37. TEDUGLUTIDE [Suspect]
     Active Substance: TEDUGLUTIDE
     Dosage: 3.2 MILLIGRAM, OTHER (7 DOSES PER WEEK)
     Route: 065
     Dates: start: 20200218
  38. TEDUGLUTIDE [Suspect]
     Active Substance: TEDUGLUTIDE
     Dosage: 3.2 MILLIGRAM, OTHER (7 DOSES PER WEEK)
     Route: 065
     Dates: start: 20200820
  39. TEDUGLUTIDE [Suspect]
     Active Substance: TEDUGLUTIDE
     Dosage: 3.2 MILLIGRAM, QD
     Route: 065
     Dates: start: 202010
  40. DECORTIN [Concomitant]
     Active Substance: PREDNISONE
     Indication: ARTHRALGIA
  41. TEDUGLUTIDE [Suspect]
     Active Substance: TEDUGLUTIDE
     Indication: SHORT-BOWEL SYNDROME
     Dosage: 4.25 MILLIGRAM, OTHER (7 DOSES PER WEEK)
     Route: 065
     Dates: start: 20190111, end: 20190310
  42. TEDUGLUTIDE [Suspect]
     Active Substance: TEDUGLUTIDE
     Dosage: 3.8 MILLIGRAM, OTHER (7 DOSES PER WEEK)
     Route: 065
     Dates: start: 201904, end: 20190822
  43. TEDUGLUTIDE [Suspect]
     Active Substance: TEDUGLUTIDE
     Dosage: 3.8 MILLIGRAM, OTHER (4 DOSES PER WEEK)
     Route: 065
     Dates: start: 20190823, end: 20190829
  44. TEDUGLUTIDE [Suspect]
     Active Substance: TEDUGLUTIDE
     Dosage: 3.5 MILLIGRAM, OTHER (7 DOSES PER WEEK)
     Route: 065
     Dates: start: 20191028, end: 20200214
  45. TEDUGLUTIDE [Suspect]
     Active Substance: TEDUGLUTIDE
     Dosage: 3.2 MILLIGRAM, OTHER (4 DOSES PER WEEK)
     Route: 065
     Dates: start: 20200810, end: 20200819
  46. PANTOZOL [Concomitant]
     Active Substance: PANTOPRAZOLE SODIUM
     Indication: PRODUCT USED FOR UNKNOWN INDICATION
  47. TEDUGLUTIDE [Suspect]
     Active Substance: TEDUGLUTIDE
     Dosage: 4 MILLIGRAM, OTHER (7 DOSES PER WEEK)
     Route: 065
     Dates: start: 20190311
  48. TEDUGLUTIDE [Suspect]
     Active Substance: TEDUGLUTIDE
     Dosage: 4 MILLIGRAM, OTHER (7 DOSES PER WEEK)
     Route: 065
     Dates: start: 20190311
  49. TEDUGLUTIDE [Suspect]
     Active Substance: TEDUGLUTIDE
     Dosage: 3.8 MILLIGRAM, OTHER (4 DOSES PER WEEK)
     Route: 065
     Dates: start: 20190823, end: 20190829
  50. TEDUGLUTIDE [Suspect]
     Active Substance: TEDUGLUTIDE
     Dosage: 3.2 MILLIGRAM, OTHER (4 DOSES PER WEEK)
     Route: 065
     Dates: start: 20200810, end: 20200819

REACTIONS (4)
  - Urinary tract infection [Recovered/Resolved]
  - Pain [Recovered/Resolved]
  - Selenium deficiency [Recovered/Resolved]
  - Renal colic [Not Recovered/Not Resolved]

NARRATIVE: CASE EVENT DATE: 202008
